FAERS Safety Report 6212984-X (Version None)
Quarter: 2009Q2

REPORT INFORMATION
  Report Type: 
  Country: None (occurrence: None)
  Receive Date: 20090602
  Receipt Date: 20090602
  Transmission Date: 20091009
  Serious: Yes (Hospitalization)
  Sender: FDA-Public Use
  Company Number: None

PATIENT
  Sex: Female
  Weight: 77 kg

DRUGS (1)
  1. CISPLATIN [Suspect]
     Dosage: 70 MG
     Dates: start: 20090427, end: 20090427

REACTIONS (11)
  - ANAEMIA [None]
  - CERVIX DISORDER [None]
  - DEEP VEIN THROMBOSIS [None]
  - DISEASE PROGRESSION [None]
  - HYDRONEPHROSIS [None]
  - KLEBSIELLA INFECTION [None]
  - LYMPHADENOPATHY [None]
  - NECROSIS [None]
  - PERIORBITAL OEDEMA [None]
  - PYELONEPHRITIS [None]
  - VAGINAL DISCHARGE [None]
